FAERS Safety Report 5586103-7 (Version None)
Quarter: 2008Q1

REPORT INFORMATION
  Report Type: 
  Country: None (occurrence: None)
  Receive Date: 20080109
  Receipt Date: 20080102
  Transmission Date: 20080703
  Serious: Yes (Hospitalization)
  Sender: FDA-Public Use
  Company Number: ES-MERCK-0801ESP00003

PATIENT
  Age: 28 Month
  Sex: Female

DRUGS (4)
  1. SINGULAIR [Suspect]
     Indication: BRONCHITIS CHRONIC
     Route: 048
     Dates: start: 20071201, end: 20071201
  2. SINGULAIR [Suspect]
     Indication: ASTHMA
     Route: 048
     Dates: start: 20071201, end: 20071201
  3. BUDESONIDE [Concomitant]
     Route: 065
  4. ALBUTEROL SULFATE [Concomitant]
     Route: 065

REACTIONS (4)
  - BRONCHITIS CHRONIC [None]
  - CIRCUMORAL OEDEMA [None]
  - OEDEMA [None]
  - TONGUE OEDEMA [None]
